FAERS Safety Report 18813456 (Version 9)
Quarter: 2021Q1

REPORT INFORMATION
  Report Type: Report from Study
  Country: None (occurrence: ES)
  Receive Date: 20210201
  Receipt Date: 20210324
  Transmission Date: 20210419
  Serious: Yes (Death, Hospitalization, Other)
  Sender: FDA-Public Use
  Company Number: ES-ABBVIE-21K-144-3751434-00

PATIENT
  Age: 75 Year
  Sex: Female

DRUGS (3)
  1. DUODOPA [Suspect]
     Active Substance: CARBIDOPA\LEVODOPA
     Indication: PARKINSON^S DISEASE
     Route: 050
     Dates: start: 20170110, end: 20210127
  2. DUODOPA [Suspect]
     Active Substance: CARBIDOPA\LEVODOPA
     Dosage: CONTINUOUS DOSE 4 ML/H
     Route: 050
     Dates: start: 20210128, end: 2021
  3. DUODOPA [Suspect]
     Active Substance: CARBIDOPA\LEVODOPA
     Dosage: CONTINUOUS DOSE 3.8 ML/H
     Route: 050
     Dates: start: 2021

REACTIONS (13)
  - Adverse reaction [Recovered/Resolved]
  - Bacterial infection [Recovering/Resolving]
  - Pyrexia [Recovered/Resolved]
  - Somnolence [Not Recovered/Not Resolved]
  - Cognitive disorder [Not Recovered/Not Resolved]
  - Urinary tract infection [Recovering/Resolving]
  - COVID-19 [Fatal]
  - Stoma site infection [Recovering/Resolving]
  - Unintentional medical device removal [Unknown]
  - Device dislocation [Unknown]
  - Condition aggravated [Unknown]
  - Parenteral nutrition [Unknown]
  - Constipation [Recovered/Resolved]

NARRATIVE: CASE EVENT DATE: 2021
